FAERS Safety Report 20562597 (Version 4)
Quarter: 2022Q2

REPORT INFORMATION
  Report Type: Spontaneous
  Country: US (occurrence: US)
  Receive Date: 20220307
  Receipt Date: 20220518
  Transmission Date: 20220721
  Serious: Yes (Other)
  Sender: FDA-Public Use
  Company Number: US-MALLINCKRODT-T202101367

PATIENT
  Sex: Female

DRUGS (7)
  1. H.P. ACTHAR [Suspect]
     Active Substance: CORTICOTROPIN
     Indication: Corneal oedema
     Dosage: 1 MILLILITER (80 UNITS), BIW, AS DIRECTED
     Route: 058
     Dates: start: 202101, end: 2021
  2. H.P. ACTHAR [Suspect]
     Active Substance: CORTICOTROPIN
     Indication: Corneal degeneration
     Dosage: 1 MILLILITER (80 UNITS), TWICE A WEEK
     Route: 058
     Dates: start: 202112
  3. H.P. ACTHAR [Suspect]
     Active Substance: CORTICOTROPIN
     Indication: Iris vascular disorder
  4. H.P. ACTHAR [Suspect]
     Active Substance: CORTICOTROPIN
     Indication: Ciliary body disorder
  5. H.P. ACTHAR [Suspect]
     Active Substance: CORTICOTROPIN
     Indication: Corneal dystrophy
  6. COVID-19 VACCINE [Concomitant]
     Indication: COVID-19 immunisation
     Dosage: FIRST DOSE UNK
     Route: 065
  7. COVID-19 VACCINE [Concomitant]
     Dosage: SECOND DOSE UNK
     Route: 065
     Dates: start: 2021

REACTIONS (8)
  - Corneal disorder [Unknown]
  - Corneal transplant [Unknown]
  - Appetite disorder [Unknown]
  - Swelling [Not Recovered/Not Resolved]
  - Swelling face [Not Recovered/Not Resolved]
  - Abdominal distension [Not Recovered/Not Resolved]
  - Weight increased [Not Recovered/Not Resolved]
  - Fluid retention [Not Recovered/Not Resolved]

NARRATIVE: CASE EVENT DATE: 20210101
